FAERS Safety Report 6095004-X (Version None)
Quarter: 2009Q1

REPORT INFORMATION
  Report Type: 
  Country: None (occurrence: None)
  Receive Date: 20090227
  Receipt Date: 20090213
  Transmission Date: 20090719
  Serious: Yes (Hospitalization, Other)
  Sender: FDA-Public Use
  Company Number: CA-ELI_LILLY_AND_COMPANY-CA200902004166

PATIENT
  Sex: Male

DRUGS (12)
  1. FORTEO [Suspect]
     Indication: OSTEOPOROSIS
     Dosage: 20 UG, DAILY (1/D)
     Route: 058
     Dates: start: 20081210
  2. ALENDRONATE SODIUM [Concomitant]
  3. APO-DOMPERIDONE [Concomitant]
  4. PARIET [Concomitant]
  5. FOLIC ACID [Concomitant]
  6. CALCIUM [Concomitant]
  7. AGGRENOX [Concomitant]
  8. CELEBREX [Concomitant]
  9. VITAMIN D [Concomitant]
  10. REACTINE [Concomitant]
  11. CRESTOR [Concomitant]
  12. DILAUDID [Concomitant]

REACTIONS (1)
  - TRANSIENT ISCHAEMIC ATTACK [None]
